FAERS Safety Report 7778149-5 (Version None)
Quarter: 2011Q3

REPORT INFORMATION
  Report Type: 
  Country: None (occurrence: None)
  Receive Date: 20110926
  Receipt Date: 20110324
  Transmission Date: 20111222
  Serious: No
  Sender: FDA-Public Use
  Company Number: US-MUTUAL PHARMACEUTICAL COMPANY, INC.-BCTM20110020

PATIENT
  Sex: Female

DRUGS (3)
  1. BACTRIM [Suspect]
     Indication: CHEMICAL INJURY
     Route: 065
     Dates: start: 20110101, end: 20110201
  2. BACTROBAN [Suspect]
     Indication: CHEMICAL INJURY
     Route: 065
     Dates: start: 20110101, end: 20110201
  3. REBIF [Suspect]
     Indication: MULTIPLE SCLEROSIS
     Route: 058
     Dates: start: 20100113

REACTIONS (5)
  - TOXICITY TO VARIOUS AGENTS [None]
  - RASH [None]
  - EYELID OEDEMA [None]
  - ERYTHEMA [None]
  - PRURITUS [None]
